FAERS Safety Report 5140867-5 (Version None)
Quarter: 2006Q4

REPORT INFORMATION
  Report Type: 
  Country: None (occurrence: None)
  Receive Date: 20061031
  Receipt Date: 20061019
  Transmission Date: 20070319
  Serious: Yes (Other)
  Sender: FDA-Public Use
  Company Number: IE-ALLERGAN-0606885US

PATIENT
  Age: 65 Year
  Sex: Female

DRUGS (1)
  1. BETAGAN [Suspect]
     Indication: GLAUCOMA
     Dosage: UNK, BID
     Route: 047

REACTIONS (1)
  - EYE INFECTION [None]
